FAERS Safety Report 5240303-4 (Version None)
Quarter: 2007Q1

REPORT INFORMATION
  Report Type: 
  Country: None (occurrence: None)
  Receive Date: 20061208
  Receipt Date: 20050314
  Transmission Date: 20070707
  Serious: Yes (Other)
  Sender: FDA-Public Use
  Company Number: 2004UW22545

PATIENT
  Age: 73 Year
  Sex: Female
  Weight: 58.874 kg

DRUGS (5)
  1. CRESTOR [Suspect]
     Indication: HYPERCHOLESTEROLAEMIA
     Dosage: 10 MG QD PO
     Route: 048
     Dates: start: 20040901, end: 20050309
  2. EYE DROPS [Concomitant]
  3. XANAX [Concomitant]
  4. PROPRANOLOL [Concomitant]
  5. TRIVASTAN [Concomitant]

REACTIONS (3)
  - BACK PAIN [None]
  - FLATULENCE [None]
  - POLLAKIURIA [None]
